FAERS Safety Report 18079798 (Version 1)
Quarter: 2020Q3

REPORT INFORMATION
  Report Type: Spontaneous
  Country: ES (occurrence: ES)
  Receive Date: 20200728
  Receipt Date: 20200728
  Transmission Date: 20201103
  Serious: Yes (Other)
  Sender: FDA-Public Use
  Company Number: ES-PFIZER INC-2020278218

PATIENT
  Age: 72 Year
  Sex: Male

DRUGS (2)
  1. ORFIDAL [Suspect]
     Active Substance: LORAZEPAM
     Dosage: 1 DF, 1X/DAY
  2. VANDRAL RETARD [Suspect]
     Active Substance: VENLAFAXINE HYDROCHLORIDE
     Dosage: UNK
     Dates: end: 202007

REACTIONS (6)
  - Abnormal dreams [Unknown]
  - Face injury [Unknown]
  - Haemorrhage [Unknown]
  - Fall [Unknown]
  - Dysarthria [Unknown]
  - Slow speech [Unknown]

NARRATIVE: CASE EVENT DATE: 202007
